FAERS Safety Report 14847039 (Version 1)
Quarter: 2018Q2

REPORT INFORMATION
  Report Type: Spontaneous
  Country: US (occurrence: US)
  Receive Date: 20180504
  Receipt Date: 20180504
  Transmission Date: 20180711
  Serious: Yes (Hospitalization, Other)
  Sender: FDA-Public Use
  Company Number: US-PFIZER INC-2018179153

PATIENT
  Age: 51 Year
  Sex: Female
  Weight: 83.91 kg

DRUGS (8)
  1. AMBIEN [Concomitant]
     Active Substance: ZOLPIDEM TARTRATE
     Indication: SLEEP DISORDER
     Dosage: UNK
  2. POTASSIUM [Concomitant]
     Active Substance: POTASSIUM
     Dosage: UNK
  3. EFFEXOR XR [Suspect]
     Active Substance: VENLAFAXINE HYDROCHLORIDE
     Indication: DEPRESSION
     Dosage: 50 MG, DAILY
     Dates: start: 2016
  4. EFFEXOR XR [Suspect]
     Active Substance: VENLAFAXINE HYDROCHLORIDE
     Indication: ANXIETY
     Dosage: 75MG TIME RELEASE CAPSULES-1 CAPSULE TAKEN BY MOUTH DAILY
     Route: 048
  5. FUROSEMIDE. [Concomitant]
     Active Substance: FUROSEMIDE
     Dosage: UNK
  6. SYNTHROID [Concomitant]
     Active Substance: LEVOTHYROXINE SODIUM
     Indication: THYROID DISORDER
     Dosage: 0.05MCG TABLETS-1 TABLET TAKEN BY MOUTH EVERY DAY
     Route: 048
  7. LORAZEPAM. [Concomitant]
     Active Substance: LORAZEPAM
     Indication: ANXIETY
     Dosage: 0.5MG TABLETS TAKEN BY MOUTH EVERY 8 HOURS AS NEEDED
     Route: 048
  8. FAMOTIDINE. [Concomitant]
     Active Substance: FAMOTIDINE
     Indication: ABDOMINAL DISCOMFORT
     Dosage: 40MG TABLET TAKEN ONCE DAILY BY MOUTH, 30 MINUTES BEFORE A MEAL
     Route: 048
     Dates: start: 201801

REACTIONS (10)
  - Dyspnoea [Unknown]
  - Swelling face [Unknown]
  - Mouth swelling [Unknown]
  - Swollen tongue [Unknown]
  - Hypersensitivity [Unknown]
  - Cough [Unknown]
  - Lung disorder [Unknown]
  - Pneumonia [Unknown]
  - Obstructive airways disorder [Unknown]
  - Headache [Unknown]

NARRATIVE: CASE EVENT DATE: 20180219
